FAERS Safety Report 23213785 (Version 2)
Quarter: 2024Q3

REPORT INFORMATION
  Report Type: Spontaneous
  Country: US (occurrence: US)
  Receive Date: 20231121
  Receipt Date: 20240813
  Transmission Date: 20241016
  Serious: Yes (Life-Threatening, Hospitalization)
  Sender: STRIDES
  Company Number: US-STRIDES ARCOLAB LIMITED-2023SP017185

PATIENT

DRUGS (7)
  1. PREDNISOLONE [Suspect]
     Active Substance: PREDNISOLONE
     Indication: Idiopathic pneumonia syndrome
     Dosage: UNK
     Route: 065
  2. HYDROCORTISONE [Suspect]
     Active Substance: HYDROCORTISONE\HYDROCORTISONE ACETATE
     Indication: Adrenal insufficiency
     Dosage: UNK, (STRESS DOSING)
     Route: 065
  3. HYDROCORTISONE [Suspect]
     Active Substance: HYDROCORTISONE\HYDROCORTISONE ACETATE
     Indication: Hypothalamic pituitary adrenal axis suppression
     Dosage: UNK, (STRESS DOSING)
     Route: 065
  4. HYDROCORTISONE [Suspect]
     Active Substance: HYDROCORTISONE\HYDROCORTISONE ACETATE
     Indication: Hypotension
  5. DEXAMETHASONE [Suspect]
     Active Substance: DEXAMETHASONE
     Indication: B-cell type acute leukaemia
     Dosage: UNK, CYCLICAL (RECEIVED UNDER PULSE CHEMOTHERAPY)
     Route: 065
  6. DEXAMETHASONE [Suspect]
     Active Substance: DEXAMETHASONE
     Indication: Graft versus host disease oral
     Dosage: 5 MILLILITER, QID, RECEIVED 0.1MG/ML SOLUTION
     Route: 048
  7. NOREPINEPHRINE [Concomitant]
     Active Substance: NOREPINEPHRINE\NOREPINEPHRINE BITARTRATE
     Indication: Hypotension
     Dosage: UNK
     Route: 065

REACTIONS (5)
  - Respiratory failure [Unknown]
  - Hypothalamic pituitary adrenal axis suppression [Unknown]
  - Adrenal insufficiency [Unknown]
  - Pneumonia [Unknown]
  - Sepsis [Unknown]
